FAERS Safety Report 7313225-2 (Version None)
Quarter: 2011Q1

REPORT INFORMATION
  Report Type: 
  Country: None (occurrence: None)
  Receive Date: 20110225
  Receipt Date: 20110216
  Transmission Date: 20110831
  Serious: Yes (Other)
  Sender: FDA-Public Use
  Company Number: NL-JNJFOC-20110204822

PATIENT
  Age: 5 Year
  Sex: Male

DRUGS (3)
  1. MEDIKINET [Concomitant]
  2. RISPERDAL [Suspect]
     Indication: PRODUCT USED FOR UNKNOWN INDICATION
     Route: 065
  3. RISPERDAL [Suspect]
     Route: 065

REACTIONS (2)
  - OVERDOSE [None]
  - ADVERSE EVENT [None]
